FAERS Safety Report 8171613-9 (Version None)
Quarter: 2012Q1

REPORT INFORMATION
  Report Type: 
  Country: None (occurrence: None)
  Receive Date: 20120104
  Receipt Date: 20110930
  Transmission Date: 20120608
  Serious: No
  Sender: FDA-Public Use
  Company Number: 2011HGS-002601

PATIENT
  Age: 55 Year
  Sex: Female
  Weight: 61.2356 kg

DRUGS (3)
  1. BUPROPION HCL [Concomitant]
  2. PLAQUENIL [Concomitant]
  3. BENLYSTA [Suspect]
     Indication: SYSTEMIC LUPUS ERYTHEMATOSUS
     Dosage: 1 IN 28 D, INTRAVENOUS DRIP
     Route: 041
     Dates: start: 20110929

REACTIONS (5)
  - NAUSEA [None]
  - HEADACHE [None]
  - FATIGUE [None]
  - MALAISE [None]
  - OROPHARYNGEAL PAIN [None]
